FAERS Safety Report 18057251 (Version 1)
Quarter: 2020Q3

REPORT INFORMATION
  Report Type: Spontaneous
  Country: HR (occurrence: HR)
  Receive Date: 20200723
  Receipt Date: 20200723
  Transmission Date: 20201103
  Serious: Yes (Other)
  Sender: FDA-Public Use
  Company Number: HR-TEVA-2020-HR-1803852

PATIENT
  Age: 67 Year
  Sex: Female
  Weight: 72 kg

DRUGS (1)
  1. CARBOPLATIN PLIVA [Suspect]
     Active Substance: CARBOPLATIN
     Indication: METASTATIC CARCINOMA OF THE BLADDER
     Route: 042
     Dates: start: 20200217, end: 20200217

REACTIONS (1)
  - Angioedema [Recovered/Resolved]

NARRATIVE: CASE EVENT DATE: 20200217
